FAERS Safety Report 11266350 (Version 1)
Quarter: 2015Q3

REPORT INFORMATION
  Report Type: Spontaneous
  Country: US (occurrence: US)
  Receive Date: 20150713
  Receipt Date: 20150713
  Transmission Date: 20151125
  Serious: No
  Sender: FDA-Public Use
  Company Number: US-TAKEDA-2013-02280

PATIENT

DRUGS (8)
  1. BENADRYL [Concomitant]
     Active Substance: DIPHENHYDRAMINE HYDROCHLORIDE
     Indication: PRODUCT USED FOR UNKNOWN INDICATION
     Dosage: 6.25 MG, UNK
     Route: 042
     Dates: start: 20120920, end: 20130220
  2. VELCADE [Suspect]
     Active Substance: BORTEZOMIB
     Dosage: 2.2 MG, UNK
     Route: 058
     Dates: start: 20120802, end: 20130102
  3. VELCADE [Suspect]
     Active Substance: BORTEZOMIB
     Indication: PRODUCT USED FOR UNKNOWN INDICATION
     Dosage: 2.5 MG, UNK
     Route: 058
     Dates: start: 20120702, end: 20120730
  4. ZOFRAN [Concomitant]
     Active Substance: ONDANSETRON HYDROCHLORIDE
     Indication: PRODUCT USED FOR UNKNOWN INDICATION
     Dosage: 8 MG, UNK
     Route: 042
     Dates: start: 20121108, end: 20130220
  5. MAGNESIUM SULPHATE                 /00167401/ [Concomitant]
     Indication: PRODUCT USED FOR UNKNOWN INDICATION
     Dosage: 1 MG, UNK
     Route: 042
     Dates: start: 20120702, end: 20130206
  6. VELCADE [Suspect]
     Active Substance: BORTEZOMIB
     Dosage: 2.3 UNK, UNK
     Route: 058
     Dates: start: 20130206, end: 20130220
  7. DECADRON [Concomitant]
     Active Substance: DEXAMETHASONE
     Indication: PRODUCT USED FOR UNKNOWN INDICATION
     Dosage: 1 MG, UNK
     Route: 042
     Dates: start: 20120920, end: 20130220
  8. ZANTAC                             /00550802/ [Concomitant]
     Indication: PRODUCT USED FOR UNKNOWN INDICATION
     Dosage: 50 MG, UNK
     Route: 042
     Dates: start: 20121206, end: 20130220

REACTIONS (4)
  - Fatigue [Unknown]
  - Neuropathy peripheral [Unknown]
  - Nausea [Unknown]
  - Injection site irritation [Unknown]
